FAERS Safety Report 5146186-5 (Version None)
Quarter: 2006Q4

REPORT INFORMATION
  Report Type: 
  Country: None (occurrence: None)
  Receive Date: 20061108
  Receipt Date: 20061031
  Transmission Date: 20070319
  Serious: Yes (Hospitalization)
  Sender: FDA-Public Use
  Company Number: GB-ROCHE-469285

PATIENT
  Age: 50 Year
  Sex: Female
  Weight: 62.5 kg

DRUGS (2)
  1. CAPECITABINE [Suspect]
     Indication: BREAST CANCER
     Dosage: GIVEN AFTER 4 CYCLES OF EPIRUBICIN AS PER PROTOCOL.
     Route: 048
  2. EPIRUBICIN [Suspect]
     Indication: BREAST CANCER
     Dosage: PATIENT RECEIVED 4 CYCLES OF THERAPY.  AS PER PROTOCOL, THE PATIENT RECEIVES 4 CYCLES OF EPIRUBICIN+
     Route: 042
     Dates: start: 20060821

REACTIONS (5)
  - ABSCESS [None]
  - DEHYDRATION [None]
  - MOUTH ULCERATION [None]
  - PYREXIA [None]
  - RASH GENERALISED [None]
